FAERS Safety Report 20305172 (Version 1)
Quarter: 2022Q1

REPORT INFORMATION
  Report Type: Spontaneous
  Country: DE (occurrence: DE)
  Receive Date: 20220106
  Receipt Date: 20220106
  Transmission Date: 20220423
  Serious: Yes (Other)
  Sender: FDA-Public Use
  Company Number: DE-002147023-NVSC2021DE290592

PATIENT
  Age: 78 Year
  Sex: Male

DRUGS (1)
  1. LEVETIRACETAM [Suspect]
     Active Substance: LEVETIRACETAM
     Indication: Epilepsy
     Dosage: 1000 MILLIGRAM, QD (500 MG, BID)
     Route: 065
     Dates: start: 2020, end: 2021

REACTIONS (3)
  - Seizure [Unknown]
  - Delirium [Unknown]
  - Anxiety [Unknown]

NARRATIVE: CASE EVENT DATE: 20210509
